FAERS Safety Report 14984453 (Version 2)
Quarter: 2018Q2

REPORT INFORMATION
  Report Type: Spontaneous
  Country: ZA (occurrence: ZA)
  Receive Date: 20180607
  Receipt Date: 20180621
  Transmission Date: 20180711
  Serious: Yes (Hospitalization)
  Sender: FDA-Public Use
  Company Number: ZA-PFIZER INC-2018226741

PATIENT
  Age: 53 Year
  Sex: Female

DRUGS (5)
  1. ZOPAX [Suspect]
     Active Substance: ALPRAZOLAM
     Dosage: 1 MG, UNK
  2. ZOPIVANE [Suspect]
     Active Substance: ZOPICLONE
     Dosage: 7.5 MG, UNK
  3. PEARINDA [Suspect]
     Active Substance: PERINDOPRIL ERBUMINE
     Dosage: 8 MG, UNK
  4. PREMARIN [Suspect]
     Active Substance: ESTROGENS, CONJUGATED
     Dosage: 1.25 MG, UNK
  5. TREPILINE [Suspect]
     Active Substance: AMITRIPTYLINE
     Dosage: 10 MG, UNK

REACTIONS (1)
  - Gastroenteritis viral [Recovered/Resolved]
